FAERS Safety Report 19503417 (Version 2)
Quarter: 2021Q3

REPORT INFORMATION
  Report Type: Report from Study
  Country: US (occurrence: US)
  Receive Date: 20210707
  Receipt Date: 20210713
  Transmission Date: 20211014
  Serious: Yes (Hospitalization, Other)
  Sender: FDA-Public Use
  Company Number: US-VIIV HEALTHCARE LIMITED-US2021GSK145388

PATIENT
  Sex: Female
  Weight: 2.26 kg

DRUGS (1)
  1. DOLUTEGRAVIR [Suspect]
     Active Substance: DOLUTEGRAVIR
     Indication: HIV INFECTION
     Dosage: UNK
     Route: 064
     Dates: start: 20160511

REACTIONS (1)
  - Foetal growth restriction [Recovered/Resolved]

NARRATIVE: CASE EVENT DATE: 20160811
